FAERS Safety Report 25540714 (Version 3)
Quarter: 2025Q3

REPORT INFORMATION
  Report Type: Spontaneous
  Country: US (occurrence: US)
  Receive Date: 20250710
  Receipt Date: 20250804
  Transmission Date: 20251021
  Serious: Yes (Death, Life-Threatening, Other)
  Sender: ALEXION PHARMACEUTICALS
  Company Number: US-AstraZeneca-CH-00906958A

PATIENT
  Sex: Female

DRUGS (1)
  1. SOLIRIS [Suspect]
     Active Substance: ECULIZUMAB
     Route: 065

REACTIONS (12)
  - Cardiac arrest [Fatal]
  - Hypotension [Fatal]
  - Oxygen saturation decreased [Fatal]
  - Right ventricular dysfunction [Unknown]
  - Haemodynamic instability [Unknown]
  - Pulmonary hypertension [Unknown]
  - Sepsis [Unknown]
  - Interstitial lung disease [Unknown]
  - Bronchiectasis [Unknown]
  - Thrombotic microangiopathy [Unknown]
  - Neuroblastoma [Unknown]
  - Chronic respiratory disease [Unknown]
